FAERS Safety Report 6673460-3 (Version None)
Quarter: 2010Q2

REPORT INFORMATION
  Report Type: 
  Country: None (occurrence: None)
  Receive Date: 20100408
  Receipt Date: 20100401
  Transmission Date: 20101027
  Serious: Yes (Other)
  Sender: FDA-Public Use
  Company Number: US-PFIZER INC-2010042257

PATIENT
  Sex: Male

DRUGS (1)
  1. CHANTIX [Suspect]
     Dosage: UNK
     Dates: start: 20080201

REACTIONS (6)
  - ANXIETY DISORDER [None]
  - HALLUCINATION [None]
  - MENTAL DISORDER [None]
  - PANIC ATTACK [None]
  - PSYCHOTIC DISORDER [None]
  - SUICIDAL IDEATION [None]
